FAERS Safety Report 9694642 (Version 1)
Quarter: 2013Q4

REPORT INFORMATION
  Report Type: Report from Study
  Country: DE (occurrence: DE)
  Receive Date: 20131119
  Receipt Date: 20131119
  Transmission Date: 20140711
  Serious: Yes (Other)
  Sender: FDA-Public Use
  Company Number: DE-ROCHE-1305025

PATIENT
  Sex: 0

DRUGS (2)
  1. MABTHERA [Suspect]
     Indication: GRANULOMATOSIS WITH POLYANGIITIS
     Route: 065
  2. MABTHERA [Suspect]
     Indication: MICROSCOPIC POLYANGIITIS

REACTIONS (1)
  - Acute myeloid leukaemia [Unknown]
